FAERS Safety Report 9292919 (Version 1)
Quarter: 2013Q2

REPORT INFORMATION
  Report Type: Spontaneous
  Country: BR (occurrence: BR)
  Receive Date: 20130516
  Receipt Date: 20130516
  Transmission Date: 20140414
  Serious: Yes (Other)
  Sender: FDA-Public Use
  Company Number: BR-BAYER-2013-057985

PATIENT
  Age: 66 Year
  Sex: Female
  Weight: 59 kg

DRUGS (2)
  1. CIPRO XR [Suspect]
     Indication: URINARY RETENTION
     Dosage: UNK
     Route: 048
     Dates: start: 20130228, end: 201303
  2. FRONTAL [Suspect]
     Indication: HEADACHE
     Dosage: 2 MG, BID
     Route: 048
     Dates: start: 2009

REACTIONS (6)
  - Blood pressure increased [None]
  - Hypersensitivity [None]
  - Pruritus generalised [None]
  - Wound complication [None]
  - Blister [None]
  - Off label use [None]
